FAERS Safety Report 7092284-9 (Version None)
Quarter: 2010Q4

REPORT INFORMATION
  Report Type: 
  Country: None (occurrence: None)
  Receive Date: 20101109
  Receipt Date: 20101025
  Transmission Date: 20110411
  Serious: Yes (Other)
  Sender: FDA-Public Use
  Company Number: JP-AMGEN-JPNSP2010002189

PATIENT

DRUGS (1)
  1. ENBREL [Suspect]
     Indication: RHEUMATOID ARTHRITIS
     Dosage: UNSPECIFIED
     Route: 058
     Dates: start: 20100201, end: 20100820

REACTIONS (4)
  - COUGH [None]
  - INFECTION [None]
  - PRODUCTIVE COUGH [None]
  - RHINORRHOEA [None]
